FAERS Safety Report 18628558 (Version 1)
Quarter: 2020Q4

REPORT INFORMATION
  Report Type: Spontaneous
  Country: SE (occurrence: SE)
  Receive Date: 20201217
  Receipt Date: 20201217
  Transmission Date: 20210114
  Serious: Yes (Disabling)
  Sender: FDA-Public Use
  Company Number: SE-TEVA-2020-SE-1858530

PATIENT
  Age: 60 Year
  Sex: Male
  Weight: 100 kg

DRUGS (3)
  1. OXYNORM [Suspect]
     Active Substance: OXYCODONE HYDROCHLORIDE
     Indication: PAIN
     Dosage: ACCORDING TO THE REPORTER OXYCONTIN, OXYNORM AND OXYCODONE MIXED, A TOTAL OF ABOUT 200MG / DAY
     Dates: start: 20181009, end: 20190320
  2. OXYCODONE [Suspect]
     Active Substance: OXYCODONE
     Indication: PAIN
     Dosage: ACCORDING TO THE REPORTER OXYCONTIN, OXYNORM AND OXYCODONE MIXED, A TOTAL OF ABOUT 200MG / DAY
     Dates: start: 20181009, end: 20190320
  3. OXYCONTIN [Suspect]
     Active Substance: OXYCODONE HYDROCHLORIDE
     Indication: PAIN
     Dosage: ACCORDING TO THE REPORTER OXYCONTIN, OXYNORM AND OXYCODONE MIXED, A TOTAL OF ABOUT 200MG / DAY
     Dates: start: 20181009, end: 20190320

REACTIONS (4)
  - Fatigue [Not Recovered/Not Resolved]
  - Headache [Not Recovered/Not Resolved]
  - Memory impairment [Not Recovered/Not Resolved]
  - Personality change [Not Recovered/Not Resolved]

NARRATIVE: CASE EVENT DATE: 20190430
